FAERS Safety Report 23660733 (Version 1)
Quarter: 2024Q1

REPORT INFORMATION
  Report Type: Other
  Country: ES (occurrence: ES)
  Receive Date: 20240322
  Receipt Date: 20240322
  Transmission Date: 20240410
  Serious: Yes (Other)
  Sender: FDA-Public Use
  Company Number: None

PATIENT

DRUGS (2)
  1. ACETAMINOPHEN [Suspect]
     Active Substance: ACETAMINOPHEN
     Indication: Product used for unknown indication
     Dosage: 600 MILLIGRAM, 1 TOTAL
     Route: 048
     Dates: start: 20240229, end: 20240229
  2. OPTIRAY [Suspect]
     Active Substance: IOVERSOL
     Indication: Mammogram
     Dosage: UNK
     Route: 042
     Dates: start: 20240229, end: 20240229

REACTIONS (4)
  - Loss of consciousness [Recovered/Resolved]
  - Muscle rigidity [Recovered/Resolved]
  - Pruritus [Recovered/Resolved]
  - Vomiting [Recovered/Resolved]

NARRATIVE: CASE EVENT DATE: 20240229
